FAERS Safety Report 4607545-X (Version None)
Quarter: 2005Q1

REPORT INFORMATION
  Report Type: 
  Country: None (occurrence: None)
  Receive Date: 20050310
  Receipt Date: 20050303
  Transmission Date: 20050727
  Serious: Yes (Hospitalization)
  Sender: FDA-Public Use
  Company Number: 2005-03-0090

PATIENT
  Age: 73 Year
  Sex: Female

DRUGS (4)
  1. DIPROSONE [Suspect]
     Indication: RASH GENERALISED
     Dosage: TOP-DERM
  2. DEXAMETHASONE [Suspect]
     Indication: CHEMOTHERAPY
  3. ALKERAN [Suspect]
     Indication: CHEMOTHERAPY
  4. LYTOS [Suspect]
     Indication: CHEMOTHERAPY

REACTIONS (3)
  - DRUG HYPERSENSITIVITY [None]
  - PRURITUS [None]
  - TOXIC SKIN ERUPTION [None]
